FAERS Safety Report 7633672-9 (Version None)
Quarter: 2011Q3

REPORT INFORMATION
  Report Type: 
  Country: None (occurrence: None)
  Receive Date: 20110725
  Receipt Date: 20110718
  Transmission Date: 20111222
  Serious: Yes (Life-Threatening)
  Sender: FDA-Public Use
  Company Number: FR-GLAXOSMITHKLINE-B0733597A

PATIENT
  Age: 79 Year
  Sex: Male

DRUGS (3)
  1. ARIXTRA [Suspect]
     Indication: THROMBOSIS PROPHYLAXIS
     Dosage: 2.5MG PER DAY
     Route: 058
     Dates: start: 20110420, end: 20110425
  2. HEPARIN SODIUM [Suspect]
     Route: 042
     Dates: start: 20110419, end: 20110419
  3. CALCIPARINE [Suspect]
     Route: 058
     Dates: start: 20110425, end: 20110429

REACTIONS (2)
  - HEPARIN-INDUCED THROMBOCYTOPENIA [None]
  - CEREBROVASCULAR ACCIDENT [None]
